FAERS Safety Report 19806149 (Version 1)
Quarter: 2021Q3

REPORT INFORMATION
  Report Type: Spontaneous
  Country: US (occurrence: US)
  Receive Date: 20210909
  Receipt Date: 20210909
  Transmission Date: 20211014
  Serious: No
  Sender: FDA-Public Use
  Company Number: US-TEVA-2021-US-1949011

PATIENT
  Age: 73 Year
  Sex: Male

DRUGS (2)
  1. COVID?19 VACCINE NOS. [Suspect]
     Active Substance: COVID-19 VACCINE NOS
     Route: 065
     Dates: start: 20210303
  2. CEPHALEXIN. [Suspect]
     Active Substance: CEPHALEXIN
     Dosage: FOR 5 DAYS
     Route: 065
     Dates: start: 202104

REACTIONS (2)
  - Movement disorder [Not Recovered/Not Resolved]
  - Pain in extremity [Not Recovered/Not Resolved]

NARRATIVE: CASE EVENT DATE: 20210403
